FAERS Safety Report 5732962-4 (Version None)
Quarter: 2008Q2

REPORT INFORMATION
  Report Type: 
  Country: None (occurrence: None)
  Receive Date: 20080507
  Receipt Date: 20080507
  Transmission Date: 20081010
  Serious: Yes (Other)
  Sender: FDA-Public Use
  Company Number: None

PATIENT
  Age: 66 Year
  Sex: Male
  Weight: 81.6475 kg

DRUGS (2)
  1. DIGITEK  0.25MG  UDL LABS [Suspect]
     Indication: ARRHYTHMIA
     Dosage: 0.25 MG  1 PER DAY  PO
     Route: 048
     Dates: start: 20080407, end: 20080506
  2. DIGITEK  0.25MG  UDL LABS [Suspect]
     Indication: HEART RATE INCREASED
     Dosage: 0.25 MG  1 PER DAY  PO
     Route: 048
     Dates: start: 20080407, end: 20080506

REACTIONS (3)
  - NAUSEA [None]
  - PHARMACEUTICAL PRODUCT COMPLAINT [None]
  - VOMITING [None]
